FAERS Safety Report 17653729 (Version 2)
Quarter: 2020Q2

REPORT INFORMATION
  Report Type: Spontaneous
  Country: US (occurrence: US)
  Receive Date: 20200409
  Receipt Date: 20200421
  Transmission Date: 20200713
  Serious: Yes (Death, Hospitalization, Other)
  Sender: FDA-Public Use
  Company Number: US-INCYTE CORPORATION-2020IN003343

PATIENT

DRUGS (1)
  1. JAKAFI [Suspect]
     Active Substance: RUXOLITINIB
     Indication: GRAFT VERSUS HOST DISEASE
     Dosage: 15 MILLIGRAM, BID
     Route: 048
     Dates: start: 201802, end: 202004

REACTIONS (2)
  - Off label use [Unknown]
  - Coronavirus infection [Fatal]

NARRATIVE: CASE EVENT DATE: 201802
